FAERS Safety Report 12786743 (Version 1)
Quarter: 2016Q3

REPORT INFORMATION
  Report Type: Spontaneous
  Country: US (occurrence: US)
  Receive Date: 20160927
  Receipt Date: 20160927
  Transmission Date: 20161109
  Serious: Yes (Hospitalization)
  Sender: FDA-Public Use
  Company Number: US-PFIZER INC-2016443817

PATIENT
  Age: 45 Year
  Sex: Male
  Weight: 83.9 kg

DRUGS (4)
  1. CARVEDILOL. [Suspect]
     Active Substance: CARVEDILOL
     Dosage: 6.25, 2X/DAY
  2. FUROSEMIDE. [Suspect]
     Active Substance: FUROSEMIDE
     Dosage: 40 MG, DAILY
  3. CARVEDILOL. [Suspect]
     Active Substance: CARVEDILOL
     Dosage: 3.125, 2X/DAY
  4. LISINOPRIL. [Suspect]
     Active Substance: LISINOPRIL
     Dosage: 5 MG, DAILY

REACTIONS (2)
  - Oedema [Unknown]
  - Dyspnoea [Unknown]

NARRATIVE: CASE EVENT DATE: 20150127
